FAERS Safety Report 17973897 (Version 1)
Quarter: 2020Q3

REPORT INFORMATION
  Report Type: Spontaneous
  Country: US (occurrence: US)
  Receive Date: 20200702
  Receipt Date: 20200702
  Transmission Date: 20201103
  Serious: No
  Sender: FDA-Public Use
  Company Number: US-JNJFOC-20200633562

PATIENT
  Age: 35 Year
  Sex: Female
  Weight: 113.5 kg

DRUGS (1)
  1. STELARA [Suspect]
     Active Substance: USTEKINUMAB
     Indication: RHEUMATOID ARTHRITIS
     Route: 058

REACTIONS (4)
  - Off label use [Unknown]
  - Product use in unapproved indication [Unknown]
  - Urinary tract infection [Not Recovered/Not Resolved]
  - Incorrect route of product administration [Unknown]

NARRATIVE: CASE EVENT DATE: 20200621
